FAERS Safety Report 6921346-9 (Version None)
Quarter: 2010Q3

REPORT INFORMATION
  Report Type: 
  Country: None (occurrence: None)
  Receive Date: 20100812
  Receipt Date: 20100729
  Transmission Date: 20110219
  Serious: Yes (Hospitalization)
  Sender: FDA-Public Use
  Company Number: US-ELI_LILLY_AND_COMPANY-US201008000137

PATIENT
  Age: 60 Year
  Sex: Male

DRUGS (7)
  1. ZYPREXA [Suspect]
     Indication: SCHIZOPHRENIA, PARANOID TYPE
     Dosage: 5 MG, 2/D
     Route: 048
  2. ZYPREXA [Suspect]
     Dosage: 20 MG, DAILY (1/D)
     Route: 048
     Dates: end: 20100101
  3. ZYPREXA [Suspect]
     Indication: SCHIZOPHRENIA, PARANOID TYPE
     Dosage: 1 D/F, AS NEEDED
     Route: 030
     Dates: start: 20080101, end: 20100714
  4. ZYPREXA [Suspect]
     Dosage: 10 MG, 3/D
     Route: 030
     Dates: start: 20100715
  5. ZYPREXA [Suspect]
     Dosage: 30 MG, DAILY (1/D)
     Route: 030
  6. BENZTROPINE MESYLATE [Concomitant]
  7. ACETAMINOPHEN [Concomitant]

REACTIONS (4)
  - DRUG INEFFECTIVE [None]
  - HOSPITALISATION [None]
  - OVERDOSE [None]
  - SCHIZOPHRENIA [None]
